FAERS Safety Report 10185122 (Version 2)
Quarter: 2014Q2

REPORT INFORMATION
  Report Type: Spontaneous
  Country: IT (occurrence: IT)
  Receive Date: 20140521
  Receipt Date: 20140521
  Transmission Date: 20141212
  Serious: Yes (Death, Disabling, Other)
  Sender: FDA-Public Use
  Company Number: IT-CELGENEUS-083-50794-14023936

PATIENT
  Age: 78 Year
  Sex: Female

DRUGS (1)
  1. VIDAZA [Suspect]
     Indication: MYELODYSPLASTIC SYNDROME
     Dosage: 25 MILLIGRAM
     Route: 058
     Dates: start: 20130121, end: 20131223

REACTIONS (3)
  - Pneumonia [Fatal]
  - Septic shock [Fatal]
  - Myelofibrosis [Unknown]
